FAERS Safety Report 11373267 (Version 1)
Quarter: 2015Q3

REPORT INFORMATION
  Report Type: Spontaneous
  Country: US (occurrence: US)
  Receive Date: 20150811
  Receipt Date: 20150811
  Transmission Date: 20151125
  Serious: No
  Sender: FDA-Public Use
  Company Number: US-ELI_LILLY_AND_COMPANY-US201208000780

PATIENT
  Sex: Male
  Weight: 81.63 kg

DRUGS (4)
  1. CIALIS [Suspect]
     Active Substance: TADALAFIL
     Dosage: 2.5 MG, QD
  2. HCT [Concomitant]
     Active Substance: HYDROCHLOROTHIAZIDE
  3. BENICAR [Concomitant]
     Active Substance: OLMESARTAN MEDOXOMIL
  4. CIALIS [Suspect]
     Active Substance: TADALAFIL
     Indication: ERECTILE DYSFUNCTION
     Dosage: 5 MG, QD
     Dates: start: 20120726

REACTIONS (3)
  - Fatigue [Recovered/Resolved]
  - Urinary hesitation [Recovered/Resolved]
  - Spontaneous penile erection [Recovered/Resolved]
